FAERS Safety Report 4361431-1 (Version None)
Quarter: 2004Q2

REPORT INFORMATION
  Report Type: 
  Country: None (occurrence: None)
  Receive Date: 20040517
  Receipt Date: 20040504
  Transmission Date: 20050107
  Serious: No
  Sender: FDA-Public Use
  Company Number: 04P-167-0259761-00

PATIENT
  Age: 34 Year
  Sex: Female

DRUGS (4)
  1. MERIDIA [Suspect]
     Indication: WEIGHT CONTROL
     Dosage: ORAL
     Route: 048
     Dates: end: 20040404
  2. WARFARIN SODIUM [Concomitant]
     Dosage: ORAL
     Route: 048
     Dates: start: 20020101
  3. ALBUTEROL SULFATE [Concomitant]
  4. SERETIDE [Concomitant]

REACTIONS (4)
  - DRUG INTERACTION [None]
  - HAEMOGLOBIN DECREASED [None]
  - HAEMORRHAGE [None]
  - INTERNATIONAL NORMALISED RATIO INCREASED [None]
